FAERS Safety Report 8967957 (Version 1)
Quarter: 2012Q4

REPORT INFORMATION
  Report Type: Report from Study
  Country: GB (occurrence: US)
  Receive Date: 20121217
  Receipt Date: 20121217
  Transmission Date: 20130627
  Serious: Yes (Hospitalization)
  Sender: FDA-Public Use
  Company Number: US-BRISTOL-MYERS SQUIBB COMPANY-17192428

PATIENT
  Age: 71 Year
  Sex: Female
  Weight: 60 kg

DRUGS (10)
  1. CETUXIMAB [Suspect]
     Indication: NON-SMALL CELL LUNG CANCER
     Route: 042
     Dates: start: 20090612
  2. ERLOTINIB [Suspect]
     Indication: NON-SMALL CELL LUNG CANCER
     Dosage: 1Df=150UnK
     Route: 048
     Dates: start: 20090612
  3. LOVENOX [Concomitant]
  4. HYDROCODONE [Concomitant]
     Indication: PAIN
  5. COMPAZINE [Concomitant]
     Indication: NAUSEA
  6. AMIODARONE [Concomitant]
  7. ADVAIR DISKUS [Concomitant]
  8. EVISTA [Concomitant]
     Indication: OSTEOPOROSIS
  9. SPIRIVA [Concomitant]
  10. DOXYCYCLINE [Concomitant]

REACTIONS (2)
  - Dizziness [Unknown]
  - Hip fracture [Unknown]
